FAERS Safety Report 10175488 (Version 1)
Quarter: 2014Q2

REPORT INFORMATION
  Report Type: Spontaneous
  Country: US (occurrence: US)
  Receive Date: 20140516
  Receipt Date: 20140516
  Transmission Date: 20141212
  Serious: Yes (Other)
  Sender: FDA-Public Use
  Company Number: US-AMGEN INC.-USASP2014035127

PATIENT
  Age: 62 Year
  Sex: Male

DRUGS (1)
  1. ENBREL [Suspect]
     Indication: PSORIASIS
     Dosage: 50 MG, QWK
     Route: 065
     Dates: start: 20091118, end: 201104

REACTIONS (5)
  - Pancreatitis [Not Recovered/Not Resolved]
  - Presyncope [Recovered/Resolved]
  - Arthralgia [Not Recovered/Not Resolved]
  - Blood glucose decreased [Recovered/Resolved]
  - Psoriasis [Not Recovered/Not Resolved]
